FAERS Safety Report 13353645 (Version 1)
Quarter: 2017Q1

REPORT INFORMATION
  Report Type: Spontaneous
  Country: US (occurrence: US)
  Receive Date: 20170319
  Receipt Date: 20170319
  Transmission Date: 20170429
  Serious: Yes (Life-Threatening, Hospitalization, Disabling)
  Sender: FDA-Public Use
  Company Number: None

PATIENT
  Age: 74 Year
  Sex: Female
  Weight: 56.25 kg

DRUGS (6)
  1. ASPIRIN. [Concomitant]
     Active Substance: ASPIRIN
  2. DOFETILIDE. [Suspect]
     Active Substance: DOFETILIDE
     Indication: HEART RATE
     Route: 048
     Dates: start: 20170208, end: 20170208
  3. HYDROCHLOROTHIAZIDE. [Concomitant]
     Active Substance: HYDROCHLOROTHIAZIDE
  4. POTASSIUM [Concomitant]
     Active Substance: POTASSIUM
  5. MAGNESIUM [Concomitant]
     Active Substance: MAGNESIUM
  6. AMLODOPINE [Concomitant]
     Active Substance: AMLODIPINE BESYLATE

REACTIONS (1)
  - Cardiac arrest [None]

NARRATIVE: CASE EVENT DATE: 20170208
